FAERS Safety Report 6195084-7 (Version None)
Quarter: 2009Q2

REPORT INFORMATION
  Report Type: 
  Country: None (occurrence: None)
  Receive Date: 20090519
  Receipt Date: 20090507
  Transmission Date: 20091009
  Serious: Yes (Death)
  Sender: FDA-Public Use
  Company Number: US-PFIZER INC-2009187134

PATIENT
  Sex: Female

DRUGS (10)
  1. DILANTIN-125 [Suspect]
     Indication: CONVULSION
  2. FELDENE [Suspect]
  3. CODEINE POLYSULFONATE [Suspect]
  4. PHENOBARBITAL [Concomitant]
  5. VERAPAMIL [Concomitant]
  6. NABUMETONE [Concomitant]
  7. FEXOFENADINE [Concomitant]
  8. LANSOPRAZOLE [Concomitant]
  9. CALCIUM [Concomitant]
  10. MULTI-VITAMINS [Concomitant]

REACTIONS (1)
  - DEATH [None]
